FAERS Safety Report 25212140 (Version 1)
Quarter: 2025Q2

REPORT INFORMATION
  Report Type: Spontaneous
  Country: PL (occurrence: PL)
  Receive Date: 20250418
  Receipt Date: 20250418
  Transmission Date: 20250717
  Serious: Yes (Hospitalization, Other)
  Sender: BRISTOL-MYERS SQUIBB COMPANY
  Company Number: PL-BRISTOL-MYERS SQUIBB COMPANY-2025-055496

PATIENT
  Age: 68 Year
  Sex: Male

DRUGS (10)
  1. NIVOLUMAB [Suspect]
     Active Substance: NIVOLUMAB
     Indication: Lung neoplasm malignant
     Dates: start: 20231219
  2. IPILIMUMAB [Suspect]
     Active Substance: IPILIMUMAB
     Indication: Lung neoplasm malignant
     Dates: start: 20231219
  3. PRADAXA [Concomitant]
     Active Substance: DABIGATRAN ETEXILATE MESYLATE
     Indication: Product used for unknown indication
  4. SPIRONOLACTONE [Concomitant]
     Active Substance: SPIRONOLACTONE
     Indication: Product used for unknown indication
     Dosage: SPIRONOL 25MG 1X1 R
  5. GLUCOPHAGE [Concomitant]
     Active Substance: METFORMIN HYDROCHLORIDE
     Indication: Product used for unknown indication
  6. JARDIANCE [Concomitant]
     Active Substance: EMPAGLIFLOZIN
     Indication: Product used for unknown indication
     Dosage: JARDIANCE 10MG 1X1 R
  7. ROSUVASTATIN CALCIUM [Concomitant]
     Active Substance: ROSUVASTATIN CALCIUM
     Indication: Product used for unknown indication
  8. DIGOXIN [Concomitant]
     Active Substance: DIGOXIN
     Indication: Product used for unknown indication
     Dosage: DIGOXIN 0.1MG 1X1R
  9. POTASSIUM CHLORIDE [Concomitant]
     Active Substance: POTASSIUM CHLORIDE
     Indication: Product used for unknown indication
     Dosage: KALIPOZ 1X1 R
  10. BISOPROLOL [Concomitant]
     Active Substance: BISOPROLOL
     Indication: Product used for unknown indication

REACTIONS (4)
  - Hypothyroidism [Unknown]
  - Circulatory collapse [Not Recovered/Not Resolved]
  - Atrial fibrillation [Unknown]
  - Osteoporotic fracture [Unknown]

NARRATIVE: CASE EVENT DATE: 20240101
